FAERS Safety Report 6886730-0 (Version None)
Quarter: 2010Q3

REPORT INFORMATION
  Report Type: 
  Country: None (occurrence: None)
  Receive Date: 20100730
  Receipt Date: 20100722
  Transmission Date: 20110219
  Serious: No
  Sender: FDA-Public Use
  Company Number: 2009BI021044

PATIENT
  Age: 61 Year
  Sex: Female

DRUGS (1)
  1. TYSABRI [Suspect]
     Indication: MULTIPLE SCLEROSIS
     Route: 042
     Dates: start: 20090624

REACTIONS (10)
  - CHILLS [None]
  - FATIGUE [None]
  - H1N1 INFLUENZA [None]
  - HEADACHE [None]
  - LARYNGITIS [None]
  - NYSTAGMUS [None]
  - OROPHARYNGEAL PAIN [None]
  - PARAESTHESIA [None]
  - PYREXIA [None]
  - VIRAL INFECTION [None]
